FAERS Safety Report 6722493-7 (Version None)
Quarter: 2010Q2

REPORT INFORMATION
  Report Type: 
  Country: None (occurrence: None)
  Receive Date: 20100512
  Receipt Date: 20100504
  Transmission Date: 20101027
  Serious: Yes (Congenital Anomaly)
  Sender: FDA-Public Use
  Company Number: GB-GILEAD-2010-0028950

PATIENT
  Sex: Female
  Weight: 3.3 kg

DRUGS (3)
  1. TRUVADA [Suspect]
     Indication: PROPHYLAXIS AGAINST HIV INFECTION
     Route: 064
  2. KALETRA [Concomitant]
     Indication: PROPHYLAXIS AGAINST HIV INFECTION
     Route: 064
  3. RETROVIR [Concomitant]
     Indication: PROPHYLAXIS AGAINST HIV INFECTION
     Route: 064

REACTIONS (2)
  - CLINODACTYLY [None]
  - MICRODACTYLY [None]
